FAERS Safety Report 4752593-2 (Version None)
Quarter: 2005Q3

REPORT INFORMATION
  Report Type: 
  Country: None (occurrence: None)
  Receive Date: 20050824
  Receipt Date: 20050817
  Transmission Date: 20060218
  Serious: Yes (Other)
  Sender: FDA-Public Use
  Company Number: 2005116807

PATIENT
  Age: 49 Year
  Sex: Female

DRUGS (3)
  1. LIPITOR [Suspect]
     Indication: BLOOD CHOLESTEROL INCREASED
     Dosage: (DAILY)
     Dates: start: 20050810, end: 20050812
  2. BENADRYL [Suspect]
     Indication: RASH
     Dates: start: 20050801
  3. THYROID TAB [Concomitant]

REACTIONS (11)
  - CHOKING SENSATION [None]
  - DIZZINESS [None]
  - DYSPHAGIA [None]
  - FATIGUE [None]
  - HEADACHE [None]
  - HOT FLUSH [None]
  - LOCAL SWELLING [None]
  - PRURITUS [None]
  - RASH ERYTHEMATOUS [None]
  - STOMACH DISCOMFORT [None]
  - TREATMENT NONCOMPLIANCE [None]
